FAERS Safety Report 9127268 (Version 1)
Quarter: 2013Q1

REPORT INFORMATION
  Report Type: Spontaneous
  Country: US (occurrence: US)
  Receive Date: 20130125
  Receipt Date: 20130125
  Transmission Date: 20140127
  Serious: Yes (Death, Other)
  Sender: FDA-Public Use
  Company Number: PHHY2013US006735

PATIENT
  Age: 60 Year
  Sex: Male

DRUGS (4)
  1. METOPROLOL [Suspect]
  2. DIGOXIN [Suspect]
  3. DIAZEPAM [Suspect]
  4. ACETAMINOPHEN W/HYDROCODONE [Suspect]

REACTIONS (2)
  - Completed suicide [Fatal]
  - Cardioactive drug level increased [Unknown]
